FAERS Safety Report 14056709 (Version 2)
Quarter: 2018Q1

REPORT INFORMATION
  Report Type: Spontaneous
  Country: AR (occurrence: AR)
  Receive Date: 20171006
  Receipt Date: 20180312
  Transmission Date: 20180508
  Serious: Yes (Other)
  Sender: FDA-Public Use
  Company Number: AR-AMGEN-ARGSP2017151881

PATIENT
  Age: 44 Year
  Sex: Female

DRUGS (1)
  1. ENBREL [Suspect]
     Active Substance: ETANERCEPT
     Indication: RHEUMATOID ARTHRITIS
     Dosage: 50 MG, UNK (EVERY 10 DAYS)
     Route: 065
     Dates: start: 20130324, end: 201707

REACTIONS (4)
  - Pain in extremity [Unknown]
  - Product use issue [Unknown]
  - Gait inability [Unknown]
  - Pneumonia [Recovered/Resolved]

NARRATIVE: CASE EVENT DATE: 20130324
